FAERS Safety Report 23189050 (Version 2)
Quarter: 2024Q4

REPORT INFORMATION
  Report Type: Report from Study
  Country: US (occurrence: US)
  Receive Date: 20231115
  Receipt Date: 20241206
  Transmission Date: 20250114
  Serious: Yes (Other)
  Sender: ABBVIE
  Company Number: US-ABBVIE-5491154

PATIENT
  Age: 59 Year
  Sex: Male

DRUGS (2)
  1. HUMIRA [Suspect]
     Active Substance: ADALIMUMAB
     Indication: Ankylosing spondylitis
     Route: 058
  2. HUMIRA [Suspect]
     Active Substance: ADALIMUMAB
     Route: 058
     Dates: start: 20230206

REACTIONS (10)
  - Bone disorder [Unknown]
  - Urinary incontinence [Unknown]
  - Escherichia infection [Unknown]
  - Abscess [Not Recovered/Not Resolved]
  - Arthralgia [Unknown]
  - Ankylosing spondylitis [Unknown]
  - Back pain [Unknown]
  - Postoperative wound infection [Unknown]
  - Anal incontinence [Unknown]
  - Pain [Unknown]

NARRATIVE: CASE EVENT DATE: 20240801
